FAERS Safety Report 17650443 (Version 1)
Quarter: 2020Q2

REPORT INFORMATION
  Report Type: Spontaneous
  Country: US (occurrence: US)
  Receive Date: 20200408
  Receipt Date: 20200408
  Transmission Date: 20200713
  Serious: Yes (Life-Threatening, Hospitalization, Other)
  Sender: FDA-Public Use
  Company Number: None

PATIENT
  Age: 19 Year
  Sex: Female
  Weight: 32.5 kg

DRUGS (10)
  1. ACYCLOVIR. [Concomitant]
     Active Substance: ACYCLOVIR
  2. TYLENOL [Concomitant]
     Active Substance: ACETAMINOPHEN
  3. REFRESH SOLUTION NOS [Concomitant]
     Active Substance: CARBOXYMETHYLCELLULOSE SODIUM\GLYCERIN
  4. SYNTHROID [Concomitant]
     Active Substance: LEVOTHYROXINE SODIUM
  5. MIRALAX [Concomitant]
     Active Substance: POLYETHYLENE GLYCOL 3350
  6. BENADRYL [Concomitant]
     Active Substance: DIPHENHYDRAMINE HYDROCHLORIDE
  7. COSOPT [Concomitant]
     Active Substance: DORZOLAMIDE HYDROCHLORIDE\TIMOLOL MALEATE
  8. MOTRIN [Concomitant]
     Active Substance: IBUPROFEN
  9. BARICITINIB 2MG ELI LILLY [Suspect]
     Active Substance: BARICITINIB
     Indication: AICARDI-GOUTIERES SYNDROME
     Route: 048
     Dates: start: 20191007, end: 20200223
  10. ERYTHROMYCIN. [Concomitant]
     Active Substance: ERYTHROMYCIN

REACTIONS (8)
  - Rash [None]
  - Marrow hyperplasia [None]
  - Liver function test increased [None]
  - Serum ferritin increased [None]
  - Normocytic anaemia [None]
  - Thrombocytopenia [None]
  - Swelling face [None]
  - Neutrophil count decreased [None]

NARRATIVE: CASE EVENT DATE: 20200331
